FAERS Safety Report 7251485-7 (Version None)
Quarter: 2011Q1

REPORT INFORMATION
  Report Type: 
  Country: None (occurrence: None)
  Receive Date: 20110128
  Receipt Date: 20110120
  Transmission Date: 20110831
  Serious: Yes (Other)
  Sender: FDA-Public Use
  Company Number: PHHY2010CA64039

PATIENT
  Sex: Female

DRUGS (3)
  1. SANDOSTATIN LAR [Suspect]
     Indication: CARCINOID TUMOUR
     Dosage: 60 MG, EVERY 3 WEEKS
     Route: 030
     Dates: start: 20040320
  2. SANDOSTATIN LAR [Suspect]
     Dosage: 60 MG, EVERY 3 WEEKS
     Route: 030
  3. SANDOSTATIN LAR [Suspect]
     Dosage: 30 MG, TIW
     Route: 030

REACTIONS (10)
  - EAR INFECTION [None]
  - WEIGHT DECREASED [None]
  - MALNUTRITION [None]
  - BLOOD PRESSURE SYSTOLIC INCREASED [None]
  - INJECTION SITE PAIN [None]
  - MYALGIA [None]
  - MALABSORPTION [None]
  - INJECTION SITE DISCOMFORT [None]
  - WEIGHT FLUCTUATION [None]
  - DECREASED APPETITE [None]
